FAERS Safety Report 6426688-1 (Version None)
Quarter: 2009Q4

REPORT INFORMATION
  Report Type: 
  Country: None (occurrence: None)
  Receive Date: 20091104
  Receipt Date: 20091028
  Transmission Date: 20100525
  Serious: Yes (Hospitalization)
  Sender: FDA-Public Use
  Company Number: NZ-AVENTIS-200921546GDDC

PATIENT
  Sex: Female

DRUGS (3)
  1. ARAVA [Suspect]
     Dosage: DOSE: UNK
  2. METHOTREXATE [Concomitant]
     Dosage: DOSE: UNK
  3. SALAZOPYRIN [Concomitant]
     Dosage: DOSE: UNK

REACTIONS (1)
  - CARDIAC DISORDER [None]
